FAERS Safety Report 15796491 (Version 3)
Quarter: 2019Q1

REPORT INFORMATION
  Report Type: Spontaneous
  Country: US (occurrence: US)
  Receive Date: 20190108
  Receipt Date: 20190125
  Transmission Date: 20190417
  Serious: Yes (Other)
  Sender: FDA-Public Use
  Company Number: US-AUROBINDO-AUR-APL-2019-000215

PATIENT
  Sex: Female
  Weight: 98.9 kg

DRUGS (4)
  1. VALSARTAN TABLETS USP 40MG [Suspect]
     Active Substance: VALSARTAN
     Dosage: 80 MILLIGRAM, ONCE A DAY
     Route: 048
  2. VALSARTAN TABLETS USP 40MG [Suspect]
     Active Substance: VALSARTAN
     Indication: HYPERTENSION
     Dosage: 40 MILLIGRAM, ONCE A DAY
     Route: 048
  3. VALSARTAN TABLETS USP 40MG [Suspect]
     Active Substance: VALSARTAN
     Dosage: 320 MILLIGRAM, ONCE A DAY
     Route: 048
     Dates: end: 2018
  4. VALSARTAN TABLETS USP 40MG [Suspect]
     Active Substance: VALSARTAN
     Dosage: 160 MILLIGRAM, ONCE A DAY
     Route: 048
     Dates: start: 2018

REACTIONS (2)
  - Chronic kidney disease [Recovered/Resolved]
  - Blood pressure fluctuation [Recovered/Resolved]
